FAERS Safety Report 19900187 (Version 5)
Quarter: 2022Q2

REPORT INFORMATION
  Report Type: Report from Study
  Country: DE (occurrence: DE)
  Receive Date: 20210930
  Receipt Date: 20220401
  Transmission Date: 20220721
  Serious: Yes (Death, Life-Threatening, Other)
  Sender: FDA-Public Use
  Company Number: None

PATIENT
  Sex: Female
  Weight: 73 kg

DRUGS (2)
  1. LETROZOLE [Suspect]
     Active Substance: LETROZOLE
     Indication: Breast cancer metastatic
     Dosage: 2.5 MG, QD
     Route: 048
     Dates: start: 20210127
  2. RIBOCICLIB [Suspect]
     Active Substance: RIBOCICLIB
     Indication: Breast cancer metastatic
     Dosage: 400 MG, QD (ADMINISTRATION SCHEME 21 DAYS INTAKE, 7 DAYS PAUSE)
     Route: 048
     Dates: start: 20210602, end: 20210628

REACTIONS (6)
  - Neutropenia [Fatal]
  - Oedema [Recovered/Resolved]
  - Wrong product administered [Unknown]
  - Memory impairment [Recovered/Resolved]
  - Nail disorder [Recovered/Resolved]
  - Dizziness [Recovered/Resolved]

NARRATIVE: CASE EVENT DATE: 20210225
